FAERS Safety Report 5515419-5 (Version None)
Quarter: 2007Q4

REPORT INFORMATION
  Report Type: 
  Country: None (occurrence: None)
  Receive Date: 20071113
  Receipt Date: 20070212
  Transmission Date: 20080405
  Serious: No
  Sender: FDA-Public Use
  Company Number: A0639229A

PATIENT
  Age: 71 Year
  Sex: Male

DRUGS (6)
  1. COREG [Suspect]
     Indication: HYPERTENSION
     Dosage: 12.5MG TWICE PER DAY
     Route: 048
     Dates: start: 20050101
  2. BENICAR [Suspect]
     Indication: DRUG USE FOR UNKNOWN INDICATION
     Route: 065
  3. NORVASC [Concomitant]
  4. BLOOD PRESSURE MEDICATION [Concomitant]
  5. PRAVACHOL [Concomitant]
  6. VITAMIN B COMPLEX CAP [Concomitant]

REACTIONS (3)
  - BLOOD PRESSURE DECREASED [None]
  - DEPRESSION [None]
  - FATIGUE [None]
